FAERS Safety Report 12815997 (Version 1)
Quarter: 2016Q4

REPORT INFORMATION
  Report Type: Spontaneous
  Country: US (occurrence: US)
  Receive Date: 20161005
  Receipt Date: 20161005
  Transmission Date: 20170207
  Serious: No
  Sender: FDA-Public Use
  Company Number: US-AMGEN-USASP2015118997

PATIENT
  Age: 70 Year
  Sex: Female

DRUGS (1)
  1. PROLIA [Suspect]
     Active Substance: DENOSUMAB
     Indication: PRODUCT USED FOR UNKNOWN INDICATION
     Dosage: UNK, UNK
     Route: 065
     Dates: start: 20150427

REACTIONS (7)
  - Pain [Unknown]
  - Hypersensitivity [Unknown]
  - Skin burning sensation [Unknown]
  - Pruritus [Unknown]
  - Bone density abnormal [Unknown]
  - Bone pain [Unknown]
  - Discomfort [Unknown]

NARRATIVE: CASE EVENT DATE: 2015
